FAERS Safety Report 10567791 (Version 4)
Quarter: 2014Q4

REPORT INFORMATION
  Report Type: Spontaneous
  Country: US (occurrence: None)
  Receive Date: 20141104
  Receipt Date: 20141219
  Transmission Date: 20150529
  Serious: Yes (Other)
  Sender: FDA-Public Use
  Company Number: 2014-US-008682

PATIENT
  Age: 40 Year
  Sex: Female
  Weight: 127 kg

DRUGS (17)
  1. LIDOCAINE (LIDOCAINE HYDROCHLORIDE) [Concomitant]
     Active Substance: LIDOCAINE
  2. VYVANSE [Concomitant]
     Active Substance: LISDEXAMFETAMINE DIMESYLATE
  3. VENOFER [Suspect]
     Active Substance: IRON SUCROSE
     Indication: PRODUCT USED FOR UNKNOWN INDICATION
     Route: 042
  4. PROTONIX [Concomitant]
     Active Substance: PANTOPRAZOLE SODIUM
  5. FLEXERIL [Concomitant]
     Active Substance: CYCLOBENZAPRINE HYDROCHLORIDE
  6. XYREM [Suspect]
     Active Substance: SODIUM OXYBATE
     Indication: NARCOLEPSY
     Route: 048
     Dates: start: 201307, end: 2013
  7. VICODIN [Concomitant]
     Active Substance: ACETAMINOPHEN\HYDROCODONE BITARTRATE
  8. KLONOPIN [Concomitant]
     Active Substance: CLONAZEPAM
  9. TRAZODONE HCL (TRAZODONE HYDROCHLORIDE) [Concomitant]
  10. XYREM [Suspect]
     Active Substance: SODIUM OXYBATE
     Indication: CATAPLEXY
     Route: 048
     Dates: start: 201307, end: 2013
  11. VITAMIN D (ERGOCALCIFEROL) [Concomitant]
     Active Substance: ERGOCALCIFEROL
  12. ZYRTEC [Concomitant]
     Active Substance: CETIRIZINE HYDROCHLORIDE
  13. PRENATAL VITAMINS (ASCORBIC ACID, BLOTIN,MINERALS NOS, NICOTINIC ACID, RETINOL, TOCOPHEROL, VITAMIN B NOS, VITAMIN D NOSE) [Concomitant]
  14. BUSPAR (BUSPIRONE HYDROCHLORIDE) [Concomitant]
  15. WELLBUTRIN (BUPROPION HYDROCHLRIDE) [Concomitant]
  16. CELEXA [Concomitant]
     Active Substance: CITALOPRAM HYDROBROMIDE
  17. ADDERALL (AMPHETAMINE ASPARTATE\AMPHETAMINE SULFATE\DEXTROAMPHETAMINE SACCHARATE\DEXTROAMPHETAMINE SULFATE) [Concomitant]

REACTIONS (15)
  - Joint injury [None]
  - Rotator cuff syndrome [None]
  - Pruritus [None]
  - Skin disorder [None]
  - Acne [None]
  - Blood iron increased [None]
  - Condition aggravated [None]
  - Muscle injury [None]
  - Alopecia [None]
  - Infection [None]
  - Exostosis [None]
  - Scab [None]
  - Nerve compression [None]
  - Skin lesion [None]
  - Ehlers-Danlos syndrome [None]

NARRATIVE: CASE EVENT DATE: 201308
